FAERS Safety Report 7069066-7 (Version None)
Quarter: 2010Q4

REPORT INFORMATION
  Report Type: 
  Country: None (occurrence: None)
  Receive Date: 20101020
  Receipt Date: 20101006
  Transmission Date: 20110411
  Serious: Yes (Hospitalization)
  Sender: FDA-Public Use
  Company Number: 2010MA003456

PATIENT
  Age: 40 Year
  Sex: Female

DRUGS (2)
  1. FLUOXETINE [Suspect]
  2. NARDIL [Suspect]

REACTIONS (4)
  - CONVULSION [None]
  - DRUG INTERACTION [None]
  - HYPOTENSION [None]
  - SEROTONIN SYNDROME [None]
